FAERS Safety Report 6807926-X (Version None)
Quarter: 2010Q2

REPORT INFORMATION
  Report Type: 
  Country: None (occurrence: None)
  Receive Date: 20100629
  Receipt Date: 20090122
  Transmission Date: 20101027
  Serious: Yes (Hospitalization, Other)
  Sender: FDA-Public Use
  Company Number: US-PFIZER INC-2009159653

PATIENT
  Sex: Male

DRUGS (3)
  1. BEXTRA [Suspect]
     Indication: CHEST PAIN
     Dosage: 20 MG, UNK
     Dates: start: 20041001, end: 20041101
  2. METHADONE [Concomitant]
     Dosage: 20 MG, 3X/DAY
  3. EFFEXOR XR [Concomitant]
     Indication: DEPRESSION
     Dosage: 300 MG, 1X/DAY

REACTIONS (1)
  - MYOCARDIAL INFARCTION [None]
